FAERS Safety Report 24757473 (Version 1)
Quarter: 2024Q4

REPORT INFORMATION
  Report Type: Other
  Country: CN (occurrence: CN)
  Receive Date: 20241220
  Receipt Date: 20241220
  Transmission Date: 20250114
  Serious: Yes (Death, Hospitalization)
  Sender: ANI
  Company Number: CN-ANIPHARMA-014116

PATIENT
  Age: 13 Year
  Sex: Female

DRUGS (24)
  1. FUROSEMIDE [Suspect]
     Active Substance: FUROSEMIDE
     Indication: Cardiac failure
  2. DIGOXIN [Concomitant]
     Active Substance: DIGOXIN
     Indication: Cardiac failure
  3. HYDROCHLOROTHIAZIDE [Concomitant]
     Active Substance: HYDROCHLOROTHIAZIDE
     Indication: Cardiac failure
  4. METOPROLOL [Concomitant]
     Active Substance: METOPROLOL
     Indication: Cardiac failure
  5. MILRINONE [Concomitant]
     Active Substance: MILRINONE
     Indication: Cardiac failure
  6. SPIRONOLACTONE [Concomitant]
     Active Substance: SPIRONOLACTONE
     Indication: Cardiac failure
  7. SPIRONOLACTONE [Concomitant]
     Active Substance: SPIRONOLACTONE
     Indication: Ventricular tachycardia
  8. SPIRONOLACTONE [Concomitant]
     Active Substance: SPIRONOLACTONE
     Indication: Nephropathy
  9. SPIRONOLACTONE [Concomitant]
     Active Substance: SPIRONOLACTONE
     Indication: Renal failure
  10. METOPROLOL [Concomitant]
     Active Substance: METOPROLOL
     Indication: Ventricular tachycardia
  11. METOPROLOL [Concomitant]
     Active Substance: METOPROLOL
     Indication: Nephropathy
  12. METOPROLOL [Concomitant]
     Active Substance: METOPROLOL
     Indication: Renal failure
  13. MILRINONE [Concomitant]
     Active Substance: MILRINONE
     Indication: Ventricular tachycardia
  14. MILRINONE [Concomitant]
     Active Substance: MILRINONE
     Indication: Nephropathy
  15. MILRINONE [Concomitant]
     Active Substance: MILRINONE
     Indication: Renal failure
  16. HYDROCHLOROTHIAZIDE [Concomitant]
     Active Substance: HYDROCHLOROTHIAZIDE
     Indication: Ventricular tachycardia
  17. HYDROCHLOROTHIAZIDE [Concomitant]
     Active Substance: HYDROCHLOROTHIAZIDE
     Indication: Nephropathy
  18. HYDROCHLOROTHIAZIDE [Concomitant]
     Active Substance: HYDROCHLOROTHIAZIDE
     Indication: Renal failure
  19. DIGOXIN [Concomitant]
     Active Substance: DIGOXIN
     Indication: Ventricular tachycardia
  20. DIGOXIN [Concomitant]
     Active Substance: DIGOXIN
     Indication: Renal failure
  21. FUROSEMIDE [Suspect]
     Active Substance: FUROSEMIDE
     Indication: Ventricular tachycardia
  22. FUROSEMIDE [Suspect]
     Active Substance: FUROSEMIDE
     Indication: Nephropathy
  23. FUROSEMIDE [Suspect]
     Active Substance: FUROSEMIDE
     Indication: Renal failure
  24. DIGOXIN [Concomitant]
     Active Substance: DIGOXIN
     Indication: Nephropathy

REACTIONS (1)
  - Drug ineffective [Fatal]
